FAERS Safety Report 25763735 (Version 1)
Quarter: 2025Q3

REPORT INFORMATION
  Report Type: Spontaneous
  Country: US (occurrence: US)
  Receive Date: 20250905
  Receipt Date: 20250905
  Transmission Date: 20251020
  Serious: No
  Sender: DOMPE FARMACEUTICI
  Company Number: US-FARMAPROD-202410-3760

PATIENT
  Sex: Female

DRUGS (15)
  1. OXERVATE [Suspect]
     Active Substance: CENEGERMIN-BKBJ
     Indication: Neurotrophic keratopathy
     Route: 047
     Dates: start: 20241027
  2. BLINK TEARS [Concomitant]
     Active Substance: POLYETHYLENE GLYCOL 400
  3. TYLENOL [Concomitant]
     Active Substance: ACETAMINOPHEN
  4. MELATONIN [Concomitant]
     Active Substance: MELATONIN
  5. VITAMIN D-400 [Concomitant]
  6. VITAMIN B12 [Concomitant]
     Active Substance: CYANOCOBALAMIN
  7. CITRACAL-D3 [Concomitant]
  8. GABAPENTIN [Concomitant]
     Active Substance: GABAPENTIN
  9. FISH OIL [Concomitant]
     Active Substance: FISH OIL
  10. ATORVASTATIN CALCIUM [Concomitant]
     Active Substance: ATORVASTATIN CALCIUM
  11. TYRVAYA [Concomitant]
     Active Substance: VARENICLINE TARTRATE
  12. MIEBO [Concomitant]
     Active Substance: PERFLUOROHEXYLOCTANE
  13. XIIDRA [Concomitant]
     Active Substance: LIFITEGRAST
  14. METOPROLOL SUCCINATE [Concomitant]
     Active Substance: METOPROLOL SUCCINATE
  15. ASPIRIN [Concomitant]
     Active Substance: ASPIRIN

REACTIONS (2)
  - Eye pain [Unknown]
  - Lacrimation increased [Unknown]
